FAERS Safety Report 5855762-3 (Version None)
Quarter: 2008Q3

REPORT INFORMATION
  Report Type: 
  Country: None (occurrence: None)
  Receive Date: 20080825
  Receipt Date: 20080821
  Transmission Date: 20090109
  Serious: Yes (Hospitalization)
  Sender: FDA-Public Use
  Company Number: KR-BRISTOL-MYERS SQUIBB COMPANY-14309231

PATIENT
  Age: 53 Year
  Sex: Female
  Weight: 52 kg

DRUGS (8)
  1. CARBOPLATIN [Suspect]
     Indication: NON-SMALL CELL LUNG CANCER STAGE IIIA
     Dosage: 387MG DAY1 Q3W 21JAN08,456MG 2008-UNK,462MG 2008-UNK,459MG 2008-UNK,448MG 17APR08-ONG. 5 CYCLES
     Route: 042
     Dates: start: 20080417, end: 20080417
  2. ALIMTA [Suspect]
     Indication: NON-SMALL CELL LUNG CANCER STAGE IIIA
     Dosage: 765MG D1 Q3W 21JAN08-UNK,765MG 21JAN08-UNK,775MG 2008-UNK,770MG 2008-UNK,770MG 17APR08-ONG 5 CYCLES
     Route: 042
     Dates: start: 20080417, end: 20080417
  3. FOLIC ACID [Concomitant]
     Dates: start: 20080121
  4. VITAMIN B-12 [Concomitant]
     Dates: start: 20080114
  5. ZOLPIDEM TARTRATE [Concomitant]
     Indication: INSOMNIA
     Dates: start: 20080408, end: 20080414
  6. METOCLOPRAMIDE HCL [Concomitant]
     Indication: VOMITING
     Dates: start: 20080325, end: 20080414
  7. ACETAMINOPHEN [Concomitant]
     Indication: HEADACHE
     Dates: start: 20080415, end: 20080421
  8. CIPROFLOXACIN HCL [Concomitant]
     Indication: UPPER RESPIRATORY TRACT INFECTION
     Dates: start: 20080415, end: 20080421

REACTIONS (5)
  - LEUKOPENIA [None]
  - LUNG CONSOLIDATION [None]
  - NEUTROPENIA [None]
  - THROMBOCYTOPENIA [None]
  - VOMITING [None]
